FAERS Safety Report 4568120-9 (Version None)
Quarter: 2005Q1

REPORT INFORMATION
  Report Type: 
  Country: None (occurrence: None)
  Receive Date: 20050202
  Receipt Date: 20050124
  Transmission Date: 20050727
  Serious: Yes (Hospitalization)
  Sender: FDA-Public Use
  Company Number: US-ROCHE-393363

PATIENT
  Age: 16 Year
  Sex: Male
  Weight: 69.8 kg

DRUGS (15)
  1. DACLIZUMAB [Suspect]
     Route: 065
     Dates: start: 20040630, end: 20040830
  2. MYCOPHENOLATE MOFETIL [Suspect]
     Route: 065
  3. MYCOPHENOLATE MOFETIL [Suspect]
     Route: 065
  4. PROGRAF [Suspect]
     Route: 065
  5. PROGRAF [Suspect]
     Route: 065
  6. PREDNISONE [Suspect]
     Route: 065
  7. PREDNISONE [Suspect]
     Route: 065
  8. MAGNESIUM OXIDE [Concomitant]
  9. SEPTRA [Concomitant]
  10. MYCELEX [Concomitant]
  11. ZANTAC [Concomitant]
  12. CARVEDILOL [Concomitant]
  13. ENALAPRIL MALEATE [Concomitant]
  14. VALCYTE [Concomitant]
  15. K-PHOS NEUTRAL [Concomitant]

REACTIONS (2)
  - ARTERIOPATHIC DISEASE [None]
  - CYTOMEGALOVIRUS INFECTION [None]
